FAERS Safety Report 7814213-X (Version None)
Quarter: 2011Q4

REPORT INFORMATION
  Report Type: 
  Country: None (occurrence: None)
  Receive Date: 20111014
  Receipt Date: 20111006
  Transmission Date: 20120403
  Serious: Yes (Other)
  Sender: FDA-Public Use
  Company Number: JP-BRISTOL-MYERS SQUIBB COMPANY-15680283

PATIENT
  Age: 41 Year
  Sex: Female

DRUGS (3)
  1. LENDORMIN [Concomitant]
     Dosage: TABS
     Dates: start: 20100501
  2. ABILIFY [Suspect]
     Indication: SCHIZOPHRENIA, CATATONIC TYPE
     Dosage: MAY10 12MG/D
     Route: 048
     Dates: start: 20100501
  3. BIPERIDEN HYDROCHLORIDE TAB [Concomitant]
     Dosage: TABS AKIRIDEN
     Dates: start: 20100101

REACTIONS (3)
  - LIVE BIRTH [None]
  - PREGNANCY [None]
  - PREMATURE LABOUR [None]
